FAERS Safety Report 21486854 (Version 2)
Quarter: 2022Q4

REPORT INFORMATION
  Report Type: Spontaneous
  Country: PL (occurrence: PL)
  Receive Date: 20221020
  Receipt Date: 20221108
  Transmission Date: 20230112
  Serious: Yes (Other)
  Sender: FDA-Public Use
  Company Number: PL-TEVA-2022-PL-2817552

PATIENT
  Age: 50 Year
  Sex: Female

DRUGS (7)
  1. METHOTREXATE [Suspect]
     Active Substance: METHOTREXATE
     Indication: Rheumatoid arthritis
     Route: 065
  2. METHOTREXATE [Suspect]
     Active Substance: METHOTREXATE
     Dosage: 30 MG ONCE IN WEEK
     Route: 065
     Dates: start: 202005
  3. METHOTREXATE [Suspect]
     Active Substance: METHOTREXATE
     Dosage: 15 MG ONCE IN WEEK
     Route: 065
     Dates: start: 202009
  4. METHOTREXATE [Suspect]
     Active Substance: METHOTREXATE
     Dosage: INCREASED, 20 MG ONCE IN WEEK
     Route: 065
     Dates: start: 202011, end: 202101
  5. METHOTREXATE [Suspect]
     Active Substance: METHOTREXATE
     Dosage: DOSE INCREASED IN THE SECOND HALF OF JANUARY 2021, 25 MG ONCE IN WEEK
     Route: 065
     Dates: start: 202101
  6. PFIZER-BIONTECH COVID-19 VACCINE [Suspect]
     Active Substance: TOZINAMERAN
     Indication: COVID-19 immunisation
     Dosage: 30 MCG
     Route: 065
     Dates: start: 20210105
  7. PFIZER-BIONTECH COVID-19 VACCINE [Suspect]
     Active Substance: TOZINAMERAN
     Dosage: 30 MCG
     Route: 065
     Dates: start: 20210126

REACTIONS (2)
  - Injection site pain [Unknown]
  - Vaccination failure [Unknown]

NARRATIVE: CASE EVENT DATE: 20210101
